FAERS Safety Report 5716841-4 (Version None)
Quarter: 2008Q2

REPORT INFORMATION
  Report Type: 
  Country: None (occurrence: None)
  Receive Date: 20080424
  Receipt Date: 20070822
  Transmission Date: 20081010
  Serious: No
  Sender: FDA-Public Use
  Company Number: US-BAYER-200712804BWH

PATIENT
  Age: 59 Year
  Sex: Male

DRUGS (14)
  1. LEVITRA [Suspect]
     Indication: ERECTILE DYSFUNCTION
     Dosage: TOTAL DAILY DOSE: 10 MG  UNIT DOSE: 20 MG
     Route: 048
     Dates: start: 20050101
  2. CLONIDINE HCL [Concomitant]
  3. DILTIAZEM CD [Concomitant]
  4. BISOPRIL/HCTZ [Concomitant]
  5. DIOVAN [Concomitant]
  6. PREVACID [Concomitant]
  7. LOVASTATIN [Concomitant]
  8. ASPIRIN [Concomitant]
  9. NEURONTIN [Concomitant]
  10. FLEXERIL [Concomitant]
  11. PROSCAR [Concomitant]
  12. HYDROCODONE BITARTRATE [Concomitant]
  13. CAFERGOT [Concomitant]
  14. PROMETHAZINE [Concomitant]

REACTIONS (1)
  - ERECTILE DYSFUNCTION [None]
